FAERS Safety Report 12045458 (Version 1)
Quarter: 2016Q1

REPORT INFORMATION
  Report Type: Spontaneous
  Country: US (occurrence: US)
  Receive Date: 20160208
  Receipt Date: 20160208
  Transmission Date: 20160526
  Serious: No
  Sender: FDA-Public Use
  Company Number: US-AEGERION PHARMACEUTICAL INC.-AEGR001686

PATIENT

DRUGS (1)
  1. MYALEPT [Suspect]
     Active Substance: METRELEPTIN
     Indication: CONGENITAL GENERALISED LIPODYSTROPHY
     Dosage: STRENGTH: 11.3MG
     Route: 058
     Dates: start: 2001

REACTIONS (4)
  - Injection site pain [Not Recovered/Not Resolved]
  - Injection site swelling [Not Recovered/Not Resolved]
  - Injection site extravasation [Not Recovered/Not Resolved]
  - Injection site haemorrhage [Not Recovered/Not Resolved]

NARRATIVE: CASE EVENT DATE: 20140731
